FAERS Safety Report 16702672 (Version 1)
Quarter: 2019Q3

REPORT INFORMATION
  Report Type: Spontaneous
  Country: US (occurrence: US)
  Receive Date: 20190813
  Receipt Date: 20190813
  Transmission Date: 20191004
  Serious: Yes (Other)
  Sender: FDA-Public Use
  Company Number: None

PATIENT
  Age: 29 Year
  Sex: Female
  Weight: 58.5 kg

DRUGS (1)
  1. REMICADE [Suspect]
     Active Substance: INFLIXIMAB
     Indication: COLITIS ULCERATIVE
     Dosage: ?          OTHER FREQUENCY:Q 6 WEEKS;?
     Route: 041

REACTIONS (5)
  - Swollen tongue [None]
  - Swelling [None]
  - Infusion related reaction [None]
  - Oropharyngeal discomfort [None]
  - Hypersensitivity [None]

NARRATIVE: CASE EVENT DATE: 20190813
